FAERS Safety Report 11695400 (Version 2)
Quarter: 2016Q1

REPORT INFORMATION
  Report Type: Report from Study
  Country: US (occurrence: US)
  Receive Date: 20151104
  Receipt Date: 20160224
  Transmission Date: 20160525
  Serious: Yes (Other)
  Sender: FDA-Public Use
  Company Number: PHHY2015US142349

PATIENT
  Age: 50 Year
  Sex: Male

DRUGS (4)
  1. BACLOFEN. [Suspect]
     Active Substance: BACLOFEN
     Indication: PAIN
     Dosage: 160.02 UG, QD (CONCENTRATION: 400 MCG/ML)
     Route: 037
  2. FENTANYL. [Suspect]
     Active Substance: FENTANYL
     Indication: PAIN
     Dosage: 120.01 UG, QD
     Route: 037
  3. CLONIDINE. [Suspect]
     Active Substance: CLONIDINE
     Indication: PAIN
     Dosage: 160.02 UG, QD
     Route: 037
  4. BUPIVACAINE [Suspect]
     Active Substance: BUPIVACAINE
     Indication: PAIN
     Dosage: 10.001 MG, QD
     Route: 037

REACTIONS (4)
  - Infusion site fibrosis [Unknown]
  - Muscle spasms [Recovered/Resolved]
  - Asthenia [Unknown]
  - Infusion site mass [Unknown]

NARRATIVE: CASE EVENT DATE: 20150909
